FAERS Safety Report 4827364-9 (Version None)
Quarter: 2005Q4

REPORT INFORMATION
  Report Type: 
  Country: None (occurrence: None)
  Receive Date: 20051114
  Receipt Date: 20051003
  Transmission Date: 20060501
  Serious: Yes (Hospitalization, Other)
  Sender: FDA-Public Use
  Company Number: US-MERCK-0510USA02480

PATIENT
  Age: 51 Year
  Sex: Female
  Weight: 111 kg

DRUGS (2)
  1. VIOXX [Suspect]
     Indication: ARTHRALGIA
     Route: 048
     Dates: start: 20000101, end: 20030901
  2. VIOXX [Suspect]
     Route: 048
     Dates: start: 20000101, end: 20030901

REACTIONS (3)
  - CARDIAC DISORDER [None]
  - CARPAL TUNNEL SYNDROME [None]
  - MYOCARDIAL INFARCTION [None]
